FAERS Safety Report 7679720-1 (Version None)
Quarter: 2011Q3

REPORT INFORMATION
  Report Type: 
  Country: None (occurrence: None)
  Receive Date: 20110812
  Receipt Date: 20110803
  Transmission Date: 20111222
  Serious: Yes (Hospitalization)
  Sender: FDA-Public Use
  Company Number: US-JNJFOC-20110802689

PATIENT
  Age: 11 Year
  Sex: Female

DRUGS (2)
  1. JUNIOR STRENGTH TYLENOL GRAPE [Suspect]
     Route: 048
  2. JUNIOR STRENGTH TYLENOL GRAPE [Suspect]
     Indication: HEADACHE
     Dosage: MULTIPLE TABLETS DAILY
     Route: 048
     Dates: start: 20100301, end: 20100415

REACTIONS (1)
  - APPENDICITIS PERFORATED [None]
